FAERS Safety Report 9812665 (Version 1)
Quarter: 2014Q1

REPORT INFORMATION
  Report Type: Spontaneous
  Country: FR (occurrence: FR)
  Receive Date: 20140113
  Receipt Date: 20140113
  Transmission Date: 20141002
  Serious: Yes (Hospitalization)
  Sender: FDA-Public Use
  Company Number: FR-BEH-2014040023

PATIENT
  Age: 28 Year
  Sex: Male

DRUGS (7)
  1. PRIVIGEN [Suspect]
     Route: 042
     Dates: start: 20131105, end: 20131109
  2. PRIVIGEN [Suspect]
     Dosage: VIALS 20 G
  3. PRIVIGEN [Suspect]
     Dosage: VIALS 10 G
  4. PRIVIGEN [Suspect]
     Dosage: VIALS 5 G
  5. LOVENOX [Suspect]
     Dosage: 400 IU ANTI-XA/0.4 ML
     Route: 058
     Dates: start: 20131105, end: 20131115
  6. PARACETAMOL [Concomitant]
     Dosage: TEMPORARY ADMINISTRATIONS
     Dates: start: 20131106
  7. PRIMPERAN [Concomitant]
     Dosage: TEMPORARY ADMINISTRATIONS
     Dates: start: 20131106

REACTIONS (1)
  - Hepatocellular injury [Recovering/Resolving]
